FAERS Safety Report 18142166 (Version 2)
Quarter: 2020Q4

REPORT INFORMATION
  Report Type: Spontaneous
  Country: US (occurrence: US)
  Receive Date: 20200813
  Receipt Date: 20201001
  Transmission Date: 20210113
  Serious: No
  Sender: FDA-Public Use
  Company Number: US-SA-2020SA209286

PATIENT

DRUGS (2)
  1. AUBAGIO [Suspect]
     Active Substance: TERIFLUNOMIDE
     Indication: MULTIPLE SCLEROSIS
     Dosage: 14 MG, QD
     Route: 048
     Dates: start: 20200608, end: 2020
  2. AUBAGIO [Suspect]
     Active Substance: TERIFLUNOMIDE
     Dosage: 0.5 DF, QD (HALF A PILL)
     Route: 048
     Dates: start: 2020

REACTIONS (3)
  - Nausea [Recovering/Resolving]
  - Wrong technique in product usage process [Unknown]
  - Oral discomfort [Unknown]

NARRATIVE: CASE EVENT DATE: 2020
